FAERS Safety Report 8848375 (Version 2)
Quarter: 2012Q4

REPORT INFORMATION
  Report Type: 
  Country: CA (occurrence: CA)
  Receive Date: 20121018
  Receipt Date: 20121109
  Transmission Date: 20130627
  Serious: No
  Sender: FDA-Public Use
  Company Number: PHHY2011CA103889

PATIENT
  Age: 41 Year
  Sex: Female

DRUGS (9)
  1. GILENYA [Suspect]
     Indication: RELAPSING-REMITTING MULTIPLE SCLEROSIS
     Dosage: 0.5 mg, daily
     Route: 048
     Dates: start: 20111116
  2. CARBAMAZEPINE [Concomitant]
     Dosage: 200 mg, BID
  3. LYRICA [Concomitant]
     Dosage: 75 mg, 6/daily
  4. OXYCONTIN [Concomitant]
     Dosage: 10 mg, BID
  5. NAPROXEN [Concomitant]
     Dosage: 250 mg, PRN
  6. VITAMIN D [Concomitant]
     Dosage: 4000 IU, daily
  7. METAMUCIL [Concomitant]
     Dosage: UNK UKN, UNK
  8. BENEFIBER [Concomitant]
     Dosage: UNK UKN, UNK
  9. STOOL SOFTENER [Concomitant]
     Dosage: UNK UKN, UNK

REACTIONS (2)
  - Constipation [Recovered/Resolved]
  - Nausea [Recovered/Resolved]
